FAERS Safety Report 8645524 (Version 2)
Quarter: 2012Q4

REPORT INFORMATION
  Report Type: 
  Country: CA (occurrence: CA)
  Receive Date: 20120702
  Receipt Date: 20121015
  Transmission Date: 20130627
  Serious: Yes (Life-Threatening, Hospitalization)
  Sender: FDA-Public Use
  Company Number: CA-B.I. PHARMACEUTICALS,INC./RIDGEFIELD-2012-CN-01343CN

PATIENT
  Sex: Female

DRUGS (1)
  1. PRADAX [Suspect]
     Dosage: 300 mg
     Dates: start: 2012

REACTIONS (2)
  - Skin ulcer [Recovered/Resolved]
  - Eczema [Recovered/Resolved]
